FAERS Safety Report 5671464-0 (Version None)
Quarter: 2008Q1

REPORT INFORMATION
  Report Type: 
  Country: None (occurrence: None)
  Receive Date: 20080318
  Receipt Date: 20080313
  Transmission Date: 20080703
  Serious: Yes (Hospitalization)
  Sender: FDA-Public Use
  Company Number: US-BOEHRINGER INGELHEIM GMBH, GERMANY-2008-BP-02893BP

PATIENT
  Sex: Female

DRUGS (15)
  1. SPIRIVA [Suspect]
     Indication: CHRONIC OBSTRUCTIVE PULMONARY DISEASE
     Route: 055
     Dates: start: 20070609
  2. SPIRIVA [Suspect]
     Indication: EMPHYSEMA
  3. ASPIRIN [Concomitant]
  4. PILOCARPINE [Concomitant]
  5. PREDNISOLONE ACETATE [Concomitant]
  6. OXYGEN [Concomitant]
  7. COMBIVENT [Concomitant]
  8. LISINOPRIL [Concomitant]
  9. LASIX [Concomitant]
  10. SPIROLACTONE [Concomitant]
  11. PLAVIX [Concomitant]
  12. LIPITOR [Concomitant]
  13. XANAX [Concomitant]
  14. NITROGLYCERIN [Concomitant]
     Dosage: PRN
  15. VITAMINS [Concomitant]

REACTIONS (4)
  - ANOREXIA [None]
  - CONSTIPATION [None]
  - MYOCARDIAL INFARCTION [None]
  - VISUAL ACUITY REDUCED [None]
